FAERS Safety Report 6980482-1 (Version None)
Quarter: 2010Q3

REPORT INFORMATION
  Report Type: 
  Country: None (occurrence: None)
  Receive Date: 20100914
  Receipt Date: 20100903
  Transmission Date: 20110219
  Serious: Yes (Other)
  Sender: FDA-Public Use
  Company Number: PH-BAXTER-2010BH022864

PATIENT
  Age: 8 Month
  Sex: Male

DRUGS (1)
  1. HEMOFIL M [Suspect]
     Indication: PRODUCT USED FOR UNKNOWN INDICATION
     Route: 065
     Dates: start: 20040401

REACTIONS (3)
  - CHILLS [None]
  - CONVULSION [None]
  - PYREXIA [None]
